FAERS Safety Report 19605997 (Version 2)
Quarter: 2021Q3

REPORT INFORMATION
  Report Type: Spontaneous
  Country: CZ (occurrence: CZ)
  Receive Date: 20210723
  Receipt Date: 20210902
  Transmission Date: 20211014
  Serious: Yes (Other)
  Sender: FDA-Public Use
  Company Number: CZ-ROCHE-2875662

PATIENT
  Sex: Female

DRUGS (4)
  1. LUCENTIS [Suspect]
     Active Substance: RANIBIZUMAB
     Dosage: (RIGHT EYE)
     Route: 065
     Dates: start: 20200915
  2. LUCENTIS [Suspect]
     Active Substance: RANIBIZUMAB
     Dosage: (RIGHT EYE)
     Route: 065
     Dates: start: 20200430, end: 20201204
  3. LUCENTIS [Suspect]
     Active Substance: RANIBIZUMAB
     Indication: CHOROIDAL NEOVASCULARISATION
     Dosage: (RIGHT EYE)
     Route: 065
     Dates: start: 20200813
  4. LUCENTIS [Suspect]
     Active Substance: RANIBIZUMAB
     Indication: AGE-RELATED MACULAR DEGENERATION
     Dosage: (RIGHT EYE)
     Route: 065
     Dates: start: 20200709

REACTIONS (4)
  - Disease progression [Unknown]
  - Choroidal neovascularisation [Unknown]
  - Tachyphylaxis [Unknown]
  - Therapy non-responder [Unknown]
